FAERS Safety Report 23220353 (Version 1)
Quarter: 2023Q4

REPORT INFORMATION
  Report Type: Spontaneous
  Country: FR (occurrence: None)
  Receive Date: 20231123
  Receipt Date: 20231123
  Transmission Date: 20240109
  Serious: Yes (Other)
  Sender: FDA-Public Use
  Company Number: 2023A124626

PATIENT
  Age: 78 Year
  Sex: Female
  Weight: 78 kg

DRUGS (4)
  1. IMFINZI [Suspect]
     Active Substance: DURVALUMAB
     Indication: Cholangiocarcinoma
     Route: 040
     Dates: start: 20230105
  2. CISPLATIN [Suspect]
     Active Substance: CISPLATIN
     Indication: Cholangiocarcinoma
     Dosage: ON DAYS 1 AND 8 OF EACH 21-DAY CYCLE46.5MG UNKNOWN
     Route: 040
     Dates: start: 20230105, end: 20230112
  3. CISPLATIN [Suspect]
     Active Substance: CISPLATIN
     Indication: Cholangiocarcinoma
     Dosage: ON DAYS 1 AND 8 OF EACH 21-DAY CYCLE35.0MG UNKNOWN
     Route: 040
     Dates: start: 20230126, end: 20230223
  4. GEMCITABINE [Suspect]
     Active Substance: GEMCITABINE
     Indication: Cholangiocarcinoma
     Dosage: ON DAYS 1 AND 8 OF EACH CYCLE
     Route: 040
     Dates: start: 20230105, end: 20230622

REACTIONS (6)
  - Anaemia [Recovered/Resolved]
  - Peripheral sensory neuropathy [Not Recovered/Not Resolved]
  - Acute kidney injury [Recovered/Resolved]
  - Nausea [Recovered/Resolved]
  - Decreased appetite [Recovered/Resolved]
  - Vascular purpura [Recovered/Resolved]

NARRATIVE: CASE EVENT DATE: 20230101
